FAERS Safety Report 12837070 (Version 4)
Quarter: 2017Q1

REPORT INFORMATION
  Report Type: Spontaneous
  Country: CZ (occurrence: CZ)
  Receive Date: 20161011
  Receipt Date: 20170322
  Transmission Date: 20170428
  Serious: Yes (Death, Hospitalization, Other)
  Sender: FDA-Public Use
  Company Number: CZ-TEVA-698645ROM

PATIENT
  Age: 86 Year
  Sex: Female

DRUGS (2)
  1. METFORMIN [Suspect]
     Active Substance: METFORMIN HYDROCHLORIDE
     Indication: TYPE 2 DIABETES MELLITUS
     Route: 048
  2. INSULIN [Concomitant]
     Active Substance: INSULIN NOS
     Indication: TYPE 2 DIABETES MELLITUS

REACTIONS (23)
  - Dyspnoea at rest [Unknown]
  - Deep vein thrombosis [Unknown]
  - Hypotension [Unknown]
  - Multiple organ dysfunction syndrome [Fatal]
  - Septic shock [Fatal]
  - Anuria [Unknown]
  - Shock [Unknown]
  - Pyrexia [Unknown]
  - Hyperlactacidaemia [Unknown]
  - Left ventricular hypertrophy [Unknown]
  - Metabolic acidosis [Unknown]
  - Coagulopathy [Unknown]
  - Thrombocytopenia [Unknown]
  - Cough [Unknown]
  - Altered state of consciousness [Unknown]
  - Renal injury [Unknown]
  - Tachycardia [Unknown]
  - Encephalopathy [Unknown]
  - Muscular weakness [Unknown]
  - Urinary tract infection [Unknown]
  - Tachypnoea [Unknown]
  - Multiple organ dysfunction syndrome [Unknown]
  - Ventricular septal defect [Unknown]

NARRATIVE: CASE EVENT DATE: 201404
